FAERS Safety Report 23432554 (Version 2)
Quarter: 2024Q1

REPORT INFORMATION
  Report Type: Spontaneous
  Country: CA (occurrence: CA)
  Receive Date: 20240123
  Receipt Date: 20240201
  Transmission Date: 20240410
  Serious: No
  Sender: FDA-Public Use
  Company Number: CA-PFIZER INC-202300310709

PATIENT
  Age: 54 Year
  Sex: Female

DRUGS (2)
  1. ABRILADA [Suspect]
     Active Substance: ADALIMUMAB-AFZB
     Indication: Rheumatoid arthritis
     Dosage: 40 MG EVERY 10 DAYS, PREFILLED PEN
     Route: 058
     Dates: start: 20231213
  2. ABRILADA [Suspect]
     Active Substance: ADALIMUMAB-AFZB
     Dosage: 40 MG EVERY 10 DAYS, PREFILLED PEN
     Route: 058
     Dates: start: 20240102

REACTIONS (7)
  - Back pain [Not Recovered/Not Resolved]
  - Pain [Not Recovered/Not Resolved]
  - Discomfort [Not Recovered/Not Resolved]
  - Fatigue [Not Recovered/Not Resolved]
  - Injection site discomfort [Unknown]
  - Needle issue [Unknown]
  - Off label use [Unknown]

NARRATIVE: CASE EVENT DATE: 20231201
